FAERS Safety Report 10075253 (Version 1)
Quarter: 2014Q2

REPORT INFORMATION
  Report Type: Spontaneous
  Country: JP (occurrence: JP)
  Receive Date: 20140414
  Receipt Date: 20140414
  Transmission Date: 20141212
  Serious: Yes (Other)
  Sender: FDA-Public Use
  Company Number: JP-009507513-1404JPN004211

PATIENT
  Sex: Female

DRUGS (4)
  1. FOSAMAC TABLETS 35MG [Suspect]
     Dosage: 35 MG, QW,TAKING ON MONDAY EVERY WEEK
     Route: 048
     Dates: start: 201401
  2. BIOFERMIN (BACILLUS SUBTILIS (+) LACTOBACILLUS ACIDOPHILUS (+) STREPTO [Concomitant]
     Dosage: DAILY DOSAGE-UNKNOWN
     Route: 048
  3. BONOTEO [Concomitant]
     Dosage: DAILY DOSE-UNKNOWN
     Route: 065
  4. [THERAPY UNSPECIFIED] [Concomitant]
     Dosage: DAILY DOSE-UNKNOWN
     Route: 048

REACTIONS (5)
  - Dental necrosis [Unknown]
  - Gingival pain [Unknown]
  - Abdominal discomfort [Unknown]
  - Dyspepsia [Unknown]
  - Tooth extraction [Unknown]
